FAERS Safety Report 4830393-2 (Version None)
Quarter: 2005Q4

REPORT INFORMATION
  Report Type: 
  Country: None (occurrence: None)
  Receive Date: 20051114
  Receipt Date: 20051028
  Transmission Date: 20060501
  Serious: Yes (Hospitalization)
  Sender: FDA-Public Use
  Company Number: 2005-02290

PATIENT
  Age: 57 Year
  Sex: Female

DRUGS (6)
  1. VELCADE [Suspect]
     Indication: MULTIPLE MYELOMA
     Dosage: 1.30 MG/M2, INTRAVENOUS
     Route: 042
     Dates: start: 20050628, end: 20050930
  2. SCIO-469 () CAPSULE [Suspect]
     Indication: MULTIPLE MYELOMA
     Dosage: 60.00 MG, TID, ORAL
     Route: 048
     Dates: start: 20050628, end: 20051005
  3. LEVAQUIN [Concomitant]
  4. AMPICILLIN [Concomitant]
  5. CEFTAZIDIME SODIUM [Concomitant]
  6. METRONIDAZOLE (MITRONIDAZOLE) [Concomitant]

REACTIONS (6)
  - ASTHENIA [None]
  - CLOSTRIDIUM COLITIS [None]
  - DEHYDRATION [None]
  - DIZZINESS [None]
  - LISTERIOSIS [None]
  - PAIN [None]
